FAERS Safety Report 12246369 (Version 2)
Quarter: 2016Q2

REPORT INFORMATION
  Report Type: Spontaneous
  Country: PL (occurrence: PL)
  Receive Date: 20160407
  Receipt Date: 20160427
  Transmission Date: 20160815
  Serious: Yes (Hospitalization, Other)
  Sender: FDA-Public Use
  Company Number: PL-JNJFOC-20160404127

PATIENT
  Age: 76 Year
  Sex: Female
  Weight: 65 kg

DRUGS (7)
  1. MILRINONE [Concomitant]
     Active Substance: MILRINONE
     Indication: HYPERTENSION
     Route: 048
  2. XARELTO [Suspect]
     Active Substance: RIVAROXABAN
     Indication: ATRIAL FIBRILLATION
     Route: 048
     Dates: end: 20160304
  3. ROSUVASTATIN. [Concomitant]
     Active Substance: ROSUVASTATIN
     Indication: HYPERCHOLESTEROLAEMIA
     Route: 048
  4. ZOFENIL [Concomitant]
     Active Substance: ZOFENOPRIL
     Indication: HYPERTENSION
     Route: 048
  5. XARELTO [Suspect]
     Active Substance: RIVAROXABAN
     Indication: CEREBROVASCULAR ACCIDENT PROPHYLAXIS
     Route: 048
     Dates: end: 20160304
  6. BISOCARD [Concomitant]
     Active Substance: BISOPROLOL
     Indication: HYPERTENSION
     Route: 065
  7. TEGRETOL CR [Concomitant]
     Active Substance: CARBAMAZEPINE
     Route: 048

REACTIONS (3)
  - Syncope [Unknown]
  - Head injury [Unknown]
  - Cerebral haemorrhage [Unknown]

NARRATIVE: CASE EVENT DATE: 20160304
